FAERS Safety Report 5401266-1 (Version None)
Quarter: 2007Q3

REPORT INFORMATION
  Report Type: 
  Country: None (occurrence: None)
  Receive Date: 20070731
  Receipt Date: 20070723
  Transmission Date: 20080115
  Serious: Yes (Hospitalization, Other)
  Sender: FDA-Public Use
  Company Number: NO-GENENTECH-244943

PATIENT
  Sex: Female
  Weight: 76 kg

DRUGS (1)
  1. RITUXAN [Suspect]
     Indication: LYMPHOMA
     Dosage: 720 MG, 1/WEEK
     Route: 042
     Dates: start: 20070515, end: 20070605

REACTIONS (1)
  - RHEUMATOID ARTHRITIS [None]
